FAERS Safety Report 8512670-7 (Version None)
Quarter: 2012Q3

REPORT INFORMATION
  Report Type: 
  Country: None (occurrence: None)
  Receive Date: 20120716
  Receipt Date: 20120709
  Transmission Date: 20120928
  Serious: Yes (Other)
  Sender: FDA-Public Use
  Company Number: ZA-PFIZER INC-2012162252

PATIENT
  Age: 32 Year
  Sex: Female

DRUGS (1)
  1. DEPO-PROVERA [Suspect]
     Indication: CONTRACEPTION
     Dosage: UNK
     Route: 030
     Dates: start: 20120509, end: 20120509

REACTIONS (2)
  - CARPAL TUNNEL SYNDROME [None]
  - WEIGHT INCREASED [None]
